FAERS Safety Report 7406565-X (Version None)
Quarter: 2011Q2

REPORT INFORMATION
  Report Type: 
  Country: None (occurrence: None)
  Receive Date: 20110411
  Receipt Date: 20110328
  Transmission Date: 20111010
  Serious: Yes (Death, Other)
  Sender: FDA-Public Use
  Company Number: US-CELGENEUS-163-21880-11030424

PATIENT
  Sex: Female
  Weight: 64.9 kg

DRUGS (4)
  1. REVLIMID [Suspect]
     Dosage: 10-25MG
     Route: 048
     Dates: start: 20100916
  2. REVLIMID [Suspect]
     Dosage: 10 MILLIGRAM
     Route: 048
     Dates: start: 20110101
  3. REVLIMID [Suspect]
     Dosage: 25 MILLIGRAM
     Route: 048
     Dates: start: 20090601, end: 20090101
  4. REVLIMID [Suspect]
     Indication: MULTIPLE MYELOMA
     Dosage: 10 MILLIGRAM
     Route: 048
     Dates: start: 20090401, end: 20090101

REACTIONS (1)
  - MYOCARDIAL INFARCTION [None]
